FAERS Safety Report 17681773 (Version 7)
Quarter: 2021Q2

REPORT INFORMATION
  Report Type: Report from Study
  Country: US (occurrence: US)
  Receive Date: 20200417
  Receipt Date: 20210428
  Transmission Date: 20210716
  Serious: Yes (Hospitalization, Other)
  Sender: FDA-Public Use
  Company Number: US-GILEAD-2020-0455737

PATIENT
  Age: 56 Year
  Sex: Male
  Weight: 80 kg

DRUGS (94)
  1. DEXAMETHASONE. [Suspect]
     Active Substance: DEXAMETHASONE
     Dosage: 10 MG, BID
     Route: 042
     Dates: start: 20200412, end: 20200412
  2. CYCLOPHOSPHAMIDE. [Suspect]
     Active Substance: CYCLOPHOSPHAMIDE
     Dosage: 500
     Route: 042
     Dates: start: 20200402, end: 20200402
  3. SODIUM CHLORIDE. [Concomitant]
     Active Substance: SODIUM CHLORIDE
     Dosage: 250,ML,AS NECESSARY
     Route: 042
     Dates: start: 20200313, end: 20200315
  4. SODIUM CHLORIDE. [Concomitant]
     Active Substance: SODIUM CHLORIDE
     Dosage: UNK
     Dates: start: 20200608, end: 20200608
  5. LORAZEPAM. [Concomitant]
     Active Substance: LORAZEPAM
     Dosage: 0.5,MG,AS NECESSARY
     Route: 048
     Dates: start: 20200418
  6. LORAZEPAM. [Concomitant]
     Active Substance: LORAZEPAM
     Dosage: 0.5,MG,TWICE DAILY
     Route: 042
     Dates: start: 20200603, end: 20200603
  7. DOCUSATE SODIUM + SENNA [Concomitant]
     Active Substance: DOCUSATE SODIUM\SENNOSIDE A\SENNOSIDE B
     Dosage: 1,OTHER,TWICE DAILY
     Route: 048
     Dates: start: 20200406
  8. MORPHINE [Concomitant]
     Active Substance: MORPHINE
     Dosage: 15,MG,DAILY
     Route: 048
     Dates: start: 20200608, end: 20200608
  9. POTASSIUM CHLORIDE. [Concomitant]
     Active Substance: POTASSIUM CHLORIDE
     Dosage: 40,OTHER,DAILY
     Route: 042
     Dates: start: 20200605, end: 20200605
  10. POTASSIUM CHLORIDE. [Concomitant]
     Active Substance: POTASSIUM CHLORIDE
     Dosage: 20,OTHER,DAILY
     Route: 048
     Dates: start: 20200606, end: 20200606
  11. VALACYCLOVIR HCL [Concomitant]
     Active Substance: VALACYCLOVIR HYDROCHLORIDE
     Dosage: 1,G,TWICE DAILY
     Route: 048
     Dates: start: 20200408, end: 20200408
  12. LACTULOSE. [Concomitant]
     Active Substance: LACTULOSE
     Dosage: 15,ML,ONCE
     Route: 048
     Dates: start: 20200408, end: 20200408
  13. CEFTRIAXONE. [Concomitant]
     Active Substance: CEFTRIAXONE
     Dosage: 1,G,DAILY
     Route: 042
     Dates: start: 20200602, end: 20200604
  14. TRAZODONE [Concomitant]
     Active Substance: TRAZODONE HYDROCHLORIDE
     Dosage: 25,MG,DAILY
     Route: 048
     Dates: start: 20200603, end: 20200604
  15. DEXAMETHASONE. [Suspect]
     Active Substance: DEXAMETHASONE
     Indication: PRODUCT USED FOR UNKNOWN INDICATION
     Dosage: 40, UNK
     Route: 042
     Dates: start: 20200322, end: 20200325
  16. FLUDARABINE [Suspect]
     Active Substance: FLUDARABINE PHOSPHATE
     Dosage: 30
     Route: 042
     Dates: start: 20200402, end: 20200402
  17. ACETAMINOPHEN. [Concomitant]
     Active Substance: ACETAMINOPHEN
     Dosage: 650,MG,ONCE
     Route: 048
     Dates: start: 20200313, end: 20200313
  18. HYDROMORPHONE [Concomitant]
     Active Substance: HYDROMORPHONE
     Dosage: 8,MG,TWICE DAILY
     Route: 048
     Dates: start: 20200323, end: 20200323
  19. HYDROMORPHONE [Concomitant]
     Active Substance: HYDROMORPHONE
     Dosage: 8,MG,THREE TIMES DAILY
     Route: 048
     Dates: start: 20200324, end: 20200324
  20. PROCHLORPERAZINE. [Concomitant]
     Active Substance: PROCHLORPERAZINE
     Dosage: 10,MG,DAILY
     Route: 048
     Dates: start: 20200401, end: 20200403
  21. PROCHLORPERAZINE. [Concomitant]
     Active Substance: PROCHLORPERAZINE
     Dosage: 10,MG,ONCE
     Route: 042
     Dates: start: 20200410, end: 20200410
  22. DIATRIZOATE [Concomitant]
     Active Substance: DIATRIZOATE MEGLUMINE
     Dosage: 10,ML,THREE TIMES DAILY
     Route: 048
     Dates: start: 20200605, end: 20200605
  23. LISINOPRIL. [Concomitant]
     Active Substance: LISINOPRIL
     Dosage: 10,MG,DAILY
     Route: 048
     Dates: start: 20200605, end: 20200605
  24. AXICABTAGENE CILOLEUCEL [Suspect]
     Active Substance: AXICABTAGENE CILOLEUCEL
     Indication: DIFFUSE LARGE B-CELL LYMPHOMA
     Dosage: UNK
     Route: 042
     Dates: start: 20200406, end: 20200406
  25. DEXAMETHASONE. [Suspect]
     Active Substance: DEXAMETHASONE
     Dosage: 10 MG, QID
     Route: 042
     Dates: start: 20200413, end: 20200414
  26. DEXAMETHASONE. [Suspect]
     Active Substance: DEXAMETHASONE
     Dosage: 10 MG, BID
     Route: 042
     Dates: start: 20200415, end: 20200415
  27. OXYCODONE [Concomitant]
     Active Substance: OXYCODONE
     Dosage: 15,MG,ONCE
     Route: 048
     Dates: start: 20200313, end: 20200313
  28. MORPHINE [Concomitant]
     Active Substance: MORPHINE
     Dosage: 60,MG,DAILY
     Route: 048
     Dates: start: 20200323, end: 20200324
  29. PROCHLORPERAZINE. [Concomitant]
     Active Substance: PROCHLORPERAZINE
     Dosage: 10,MG,FOUR TIMES DAILY
     Route: 048
     Dates: start: 20200605, end: 20200605
  30. PROCHLORPERAZINE. [Concomitant]
     Active Substance: PROCHLORPERAZINE
     Dosage: 10,MG,DAILY
     Route: 042
     Dates: start: 20200608, end: 20200608
  31. CEFAZOLIN [Concomitant]
     Active Substance: CEFAZOLIN
     Dosage: 2,G,THREE TIMES DAILY
     Route: 042
     Dates: start: 20200605, end: 20200605
  32. CEFEPIME [Concomitant]
     Active Substance: CEFEPIME HYDROCHLORIDE
     Dosage: 2000,MG,TWICE DAILY
     Route: 042
     Dates: start: 20200408
  33. ACYCLOVIR [ACICLOVIR] [Concomitant]
     Active Substance: ACYCLOVIR
     Dosage: 800,MG,TWICE DAILY
     Route: 048
     Dates: start: 20200409
  34. CEFTRIAXONE. [Concomitant]
     Active Substance: CEFTRIAXONE
     Dosage: 1,G,DAILY
     Route: 042
     Dates: start: 20200608, end: 20200608
  35. HYDRALAZINE [Concomitant]
     Active Substance: HYDRALAZINE HYDROCHLORIDE
     Dosage: 10,MG,TWICE DAILY
     Route: 042
     Dates: start: 20200603, end: 20200605
  36. SODIUM CHLORIDE. [Concomitant]
     Active Substance: SODIUM CHLORIDE
     Dosage: UNK
     Dates: start: 20200605, end: 20200605
  37. HYDROMORPHONE [Concomitant]
     Active Substance: HYDROMORPHONE
     Dosage: 1,MG,AS NECESSARY
     Route: 042
     Dates: start: 20200319, end: 20200319
  38. MAGNESIUM SULFATE. [Concomitant]
     Active Substance: MAGNESIUM SULFATE
     Dosage: 2,G,DAILY
     Route: 042
     Dates: start: 20200321, end: 20200322
  39. MAGNESIUM SULFATE. [Concomitant]
     Active Substance: MAGNESIUM SULFATE
     Dosage: 2,G,DAILY
     Route: 042
     Dates: start: 20200603, end: 20200605
  40. PROCHLORPERAZINE. [Concomitant]
     Active Substance: PROCHLORPERAZINE
     Dosage: 10,MG,THREE TIMES DAILY
     Route: 048
     Dates: start: 20200604, end: 20200604
  41. CYCLOPHOSPHAMIDE. [Suspect]
     Active Substance: CYCLOPHOSPHAMIDE
     Indication: BONE MARROW CONDITIONING REGIMEN
     Dosage: 500
     Route: 042
     Dates: start: 20200401, end: 20200401
  42. METHYLPREDNISOLONE. [Concomitant]
     Active Substance: METHYLPREDNISOLONE
     Dosage: 2000,MG,DAILY
     Route: 042
     Dates: start: 20200313, end: 20200313
  43. HYDROMORPHONE [Concomitant]
     Active Substance: HYDROMORPHONE
     Dosage: 0.5,MG,AS NECESSARY
     Route: 042
     Dates: start: 20200321, end: 20200322
  44. LORAZEPAM. [Concomitant]
     Active Substance: LORAZEPAM
     Dosage: 0.5,MG,DAILY
     Route: 048
     Dates: start: 20200603, end: 20200605
  45. DOCUSATE SODIUM + SENNA [Concomitant]
     Active Substance: DOCUSATE SODIUM\SENNOSIDE A\SENNOSIDE B
     Dosage: 2,OTHER,TWICE DAILY
     Route: 048
     Dates: start: 20200320, end: 20200324
  46. MORPHINE [Concomitant]
     Active Substance: MORPHINE
     Dosage: 15,MG,TWICE DAILY
     Route: 048
     Dates: start: 20200604, end: 20200604
  47. MORPHINE [Concomitant]
     Active Substance: MORPHINE
     Dosage: 15,MG,DAILY
     Route: 048
     Dates: start: 20200605, end: 20200605
  48. CEFAZOLIN [Concomitant]
     Active Substance: CEFAZOLIN
     Dosage: 2,G,DAILY
     Route: 042
     Dates: start: 20200606, end: 20200606
  49. FLUCONAZOLE. [Concomitant]
     Active Substance: FLUCONAZOLE
     Dosage: 400,MG,DAILY
     Route: 048
     Dates: start: 20200406
  50. DIPHENHYDRAMINE. [Concomitant]
     Active Substance: DIPHENHYDRAMINE
     Dosage: 25,MG,ONCE
     Route: 042
     Dates: start: 20200406, end: 20200406
  51. CEFEPIME [Concomitant]
     Active Substance: CEFEPIME HYDROCHLORIDE
     Dosage: 2000,MG,TWICE DAILY
     Route: 042
     Dates: start: 20200408, end: 20200413
  52. DOXYCYCLINE. [Concomitant]
     Active Substance: DOXYCYCLINE
     Dosage: 100,MG,TWICE DAILY
     Route: 048
     Dates: start: 20200409
  53. DOCUSATE SODIUM + SENNA [Concomitant]
     Active Substance: DOCUSATE SODIUM\SENNOSIDE A\SENNOSIDE B
     Dosage: 50?8.6,MG,AS NECESSARY
     Route: 048
     Dates: start: 20200528
  54. CETIRIZINE [Concomitant]
     Active Substance: CETIRIZINE HYDROCHLORIDE
     Dosage: 10,MG,DAILY
     Route: 048
     Dates: start: 2000
  55. ACETAMINOPHEN. [Concomitant]
     Active Substance: ACETAMINOPHEN
     Dosage: 1000,MG,TWICE DAILY
     Route: 048
     Dates: start: 20200409, end: 20200410
  56. SORBITOL. [Concomitant]
     Active Substance: SORBITOL
     Dosage: 30,ML,DAILY
     Route: 048
     Dates: start: 20200323, end: 20200324
  57. POTASSIUM CHLORIDE. [Concomitant]
     Active Substance: POTASSIUM CHLORIDE
     Dosage: 20,OTHER,DAILY
     Route: 042
     Dates: start: 20200412
  58. PROCHLORPERAZINE. [Concomitant]
     Active Substance: PROCHLORPERAZINE
     Dosage: 10,MG,ONCE
     Route: 042
     Dates: start: 20200406, end: 20200406
  59. PROCHLORPERAZINE. [Concomitant]
     Active Substance: PROCHLORPERAZINE
     Dosage: 10,MG,DAILY
     Route: 048
     Dates: start: 20200606, end: 20200606
  60. CEFAZOLIN [Concomitant]
     Active Substance: CEFAZOLIN
     Dosage: 2,G,ONCE
     Route: 042
     Dates: start: 20200402, end: 20200402
  61. CIPROFLOXACIN. [Concomitant]
     Active Substance: CIPROFLOXACIN
     Dosage: 500,MG,TWICE DAILY
     Route: 048
     Dates: start: 20200406, end: 20200408
  62. SULFAMETHOXAZOLE AND TRIMETHOPRIM [Concomitant]
     Active Substance: SULFAMETHOXAZOLE\TRIMETHOPRIM
     Dosage: 400?80,MG,DAILY
     Route: 048
     Dates: start: 20200506
  63. DAPTOMYCIN. [Concomitant]
     Active Substance: DAPTOMYCIN
     Dosage: 450,MG,DAILY
     Route: 042
     Dates: start: 20200603, end: 20200604
  64. ONDANSETRON [Concomitant]
     Active Substance: ONDANSETRON
     Dosage: 4,MG,DAILY
     Route: 042
     Dates: start: 20200608, end: 20200608
  65. FLUDARABINE [Suspect]
     Active Substance: FLUDARABINE PHOSPHATE
     Dosage: 30
     Route: 042
     Dates: start: 20200403, end: 20200403
  66. ACETAMINOPHEN. [Concomitant]
     Active Substance: ACETAMINOPHEN
     Dosage: 1000,MG,TWICE DAILY
     Route: 048
     Dates: start: 20200409
  67. POLYETHYLENE GLYCOL 3350. [Concomitant]
     Active Substance: POLYETHYLENE GLYCOL 3350
     Dosage: 17,G,DAILY
     Route: 048
     Dates: start: 20200321, end: 20200324
  68. MORPHINE [Concomitant]
     Active Substance: MORPHINE
     Dosage: 60,MG,AS NECESSARY
     Route: 048
     Dates: start: 20200406
  69. PALONOSETRON. [Concomitant]
     Active Substance: PALONOSETRON HYDROCHLORIDE
     Dosage: 0.25,MG,ONCE
     Route: 042
     Dates: start: 20200401, end: 20200401
  70. POTASSIUM CHLORIDE. [Concomitant]
     Active Substance: POTASSIUM CHLORIDE
     Dosage: 40,OTHER,AS NECESSARY
     Route: 042
     Dates: start: 20200604, end: 20200604
  71. CEFAZOLIN [Concomitant]
     Active Substance: CEFAZOLIN
     Dosage: 2,G,TWICE DAILY
     Route: 042
     Dates: start: 20200604, end: 20200604
  72. MIDAZOLAM. [Concomitant]
     Active Substance: MIDAZOLAM
     Dosage: 1,MG,THREE TIMES DAILY
     Route: 042
     Dates: start: 20200402, end: 20200402
  73. LEVETIRACETAM. [Concomitant]
     Active Substance: LEVETIRACETAM
     Dosage: 750,MG,TWICE DAILY
     Route: 048
     Dates: start: 20200417, end: 20200506
  74. VALACYCLOVIR HCL [Concomitant]
     Active Substance: VALACYCLOVIR HYDROCHLORIDE
     Dosage: 1,G,THREE TIMES DAILY
     Route: 048
     Dates: start: 20200406, end: 20200407
  75. CEFEPIME [Concomitant]
     Active Substance: CEFEPIME HYDROCHLORIDE
     Dosage: 1000,MG,DAILY
     Route: 042
     Dates: start: 20200601, end: 20200601
  76. LISINOPRIL. [Concomitant]
     Active Substance: LISINOPRIL
     Dosage: 10,MG,DAILY
     Route: 048
     Dates: start: 20200606, end: 20200606
  77. DEXAMETHASONE. [Suspect]
     Active Substance: DEXAMETHASONE
     Dosage: 10 MG, BID
     Route: 042
     Dates: start: 20200411, end: 20200411
  78. DEXAMETHASONE. [Suspect]
     Active Substance: DEXAMETHASONE
     Dosage: 10 MG, QD
     Route: 042
     Dates: start: 20200416, end: 20200416
  79. CYCLOPHOSPHAMIDE. [Suspect]
     Active Substance: CYCLOPHOSPHAMIDE
     Dosage: 500
     Route: 042
     Dates: start: 20200403, end: 20200403
  80. FLUDARABINE [Suspect]
     Active Substance: FLUDARABINE PHOSPHATE
     Indication: BONE MARROW CONDITIONING REGIMEN
     Dosage: 30
     Route: 042
     Dates: start: 20200401, end: 20200401
  81. ACETAMINOPHEN. [Concomitant]
     Active Substance: ACETAMINOPHEN
     Dosage: 650,MG,ONCE
     Route: 048
     Dates: start: 20200406, end: 20200406
  82. SODIUM CHLORIDE. [Concomitant]
     Active Substance: SODIUM CHLORIDE
     Dosage: UNK
     Dates: start: 20200603, end: 20200603
  83. HYDROMORPHONE [Concomitant]
     Active Substance: HYDROMORPHONE
     Dosage: 8,MG,AS NECESSARY
     Route: 048
     Dates: start: 20200406
  84. LORAZEPAM. [Concomitant]
     Active Substance: LORAZEPAM
     Dosage: 1,MG,ONCE
     Route: 048
     Dates: start: 20200319, end: 20200319
  85. APIXABAN [Concomitant]
     Active Substance: APIXABAN
     Dosage: 10,MG,TWICE DAILY
     Route: 048
     Dates: start: 20200320, end: 20200324
  86. APIXABAN [Concomitant]
     Active Substance: APIXABAN
     Dosage: 5,MG,TWICE DAILY
     Route: 048
     Dates: start: 20200406, end: 20200409
  87. APIXABAN [Concomitant]
     Active Substance: APIXABAN
     Dosage: 5,MG,TWICE DAILY
     Route: 048
     Dates: start: 20200603, end: 20200606
  88. MAGNESIUM SULFATE. [Concomitant]
     Active Substance: MAGNESIUM SULFATE
     Dosage: 2,G,DAILY
     Route: 042
     Dates: start: 20200407
  89. POTASSIUM CHLORIDE. [Concomitant]
     Active Substance: POTASSIUM CHLORIDE
     Dosage: 40,OTHER,ONCE
     Route: 042
     Dates: start: 20200411, end: 20200411
  90. POTASSIUM CHLORIDE. [Concomitant]
     Active Substance: POTASSIUM CHLORIDE
     Dosage: 40,OTHER,DAILY
     Route: 042
     Dates: start: 20200603, end: 20200603
  91. PROCHLORPERAZINE. [Concomitant]
     Active Substance: PROCHLORPERAZINE
     Dosage: 5,MG,TWICE DAILY
     Route: 042
     Dates: start: 20200603, end: 20200603
  92. RBC [Concomitant]
     Active Substance: HUMAN RED BLOOD CELL
     Dosage: 500,ML,CONTINUOUS
     Route: 042
     Dates: start: 20200405, end: 20200406
  93. LEVETIRACETAM. [Concomitant]
     Active Substance: LEVETIRACETAM
     Dosage: 750,MG,TWICE DAILY
     Route: 048
     Dates: start: 20200406
  94. TRAZODONE [Concomitant]
     Active Substance: TRAZODONE HYDROCHLORIDE
     Dosage: 25,MG,TWICE DAILY
     Route: 048
     Dates: start: 20200605, end: 20200605

REACTIONS (5)
  - Confusional state [Recovered/Resolved]
  - Pain in extremity [Recovered/Resolved]
  - Agitation [Recovered/Resolved]
  - Sinus bradycardia [Recovered/Resolved]
  - Hypertension [Recovered/Resolved]

NARRATIVE: CASE EVENT DATE: 20200319
